FAERS Safety Report 12906284 (Version 1)
Quarter: 2016Q4

REPORT INFORMATION
  Report Type: Spontaneous
  Country: US (occurrence: US)
  Receive Date: 20161103
  Receipt Date: 20161103
  Transmission Date: 20170207
  Serious: No
  Sender: FDA-Public Use
  Company Number: US-PFIZER INC-2016509755

PATIENT

DRUGS (1)
  1. LYRICA [Suspect]
     Active Substance: PREGABALIN
     Indication: FIBROMYALGIA
     Dosage: 900 MG, DAILY [300 MGX 3 A DAY]

REACTIONS (3)
  - Withdrawal syndrome [Unknown]
  - Quality of life decreased [Unknown]
  - Overdose [Unknown]
